FAERS Safety Report 4919972-1 (Version None)
Quarter: 2006Q1

REPORT INFORMATION
  Report Type: 
  Country: None (occurrence: None)
  Receive Date: 20060217
  Receipt Date: 20060208
  Transmission Date: 20060701
  Serious: Yes (Other)
  Sender: FDA-Public Use
  Company Number: 222002

PATIENT
  Age: 75 Year
  Sex: Male

DRUGS (2)
  1. RITUXAN [Suspect]
     Indication: B-CELL LYMPHOMA
  2. RADIATION THERAPY [Concomitant]

REACTIONS (1)
  - NEUTROPHIL COUNT DECREASED [None]
